FAERS Safety Report 10403109 (Version 2)
Quarter: 2014Q3

REPORT INFORMATION
  Report Type: Spontaneous
  Country: US (occurrence: US)
  Receive Date: 20140822
  Receipt Date: 20140822
  Transmission Date: 20150326
  Serious: Yes (Death, Hospitalization)
  Sender: FDA-Public Use
  Company Number: US-GLAXOSMITHKLINE-A0770314A

PATIENT
  Sex: Male
  Weight: 109.1 kg

DRUGS (8)
  1. AVANDIA [Suspect]
     Active Substance: ROSIGLITAZONE MALEATE
     Indication: DIABETES MELLITUS
     Dosage: 8MG PER DAY
     Route: 048
     Dates: start: 200610, end: 20070107
  2. LASIX [Concomitant]
     Active Substance: FUROSEMIDE
  3. GLUCOPHAGE [Concomitant]
     Active Substance: METFORMIN HYDROCHLORIDE
  4. CORGARD [Concomitant]
     Active Substance: NADOLOL
  5. PRAVASTATIN [Concomitant]
     Active Substance: PRAVASTATIN\PRAVASTATIN SODIUM
  6. METOPROLOL [Concomitant]
     Active Substance: METOPROLOL
  7. GLUCOTROL [Concomitant]
     Active Substance: GLIPIZIDE
  8. NITROSTAT [Concomitant]
     Active Substance: NITROGLYCERIN
     Dates: start: 2002, end: 20070105

REACTIONS (2)
  - Cardiogenic shock [Fatal]
  - Myocardial infarction [Fatal]
